FAERS Safety Report 10353233 (Version 2)
Quarter: 2014Q3

REPORT INFORMATION
  Report Type: Spontaneous
  Country: US (occurrence: US)
  Receive Date: 20140730
  Receipt Date: 20140808
  Transmission Date: 20150326
  Serious: No
  Sender: FDA-Public Use
  Company Number: US-GILEAD-2014-0110472

PATIENT
  Age: 37 Year
  Sex: Female

DRUGS (4)
  1. LETAIRIS [Suspect]
     Active Substance: AMBRISENTAN
     Indication: PRODUCT USED FOR UNKNOWN INDICATION
     Dosage: 10 MG, QD
     Route: 065
     Dates: start: 20110421
  2. LETAIRIS [Suspect]
     Active Substance: AMBRISENTAN
     Dates: start: 20110421
  3. ORENITRAM [Concomitant]
     Active Substance: TREPROSTINIL
     Dosage: 9 MG, TID
     Route: 048
  4. REMODULIN [Concomitant]
     Active Substance: TREPROSTINIL
     Route: 058

REACTIONS (2)
  - Nausea [Unknown]
  - Diarrhoea [Not Recovered/Not Resolved]
